FAERS Safety Report 7033939-1 (Version None)
Quarter: 2010Q4

REPORT INFORMATION
  Report Type: 
  Country: None (occurrence: None)
  Receive Date: 20101007
  Receipt Date: 20100927
  Transmission Date: 20110411
  Serious: Yes (Other)
  Sender: FDA-Public Use
  Company Number: JP-MERCK-1009USA03687

PATIENT
  Age: 47 Year
  Sex: Male

DRUGS (4)
  1. ZETIA [Suspect]
     Indication: TYPE IIA HYPERLIPIDAEMIA
     Route: 048
     Dates: start: 20100708, end: 20100915
  2. CRESTOR [Concomitant]
     Route: 065
     Dates: start: 20010703
  3. ALLORIN [Concomitant]
     Route: 065
     Dates: start: 20050916
  4. POTASSIUM SODIUM HYDROGEN CITRATE [Concomitant]
     Route: 065
     Dates: start: 20100109

REACTIONS (5)
  - CONTUSION [None]
  - FACIAL BONES FRACTURE [None]
  - FALL [None]
  - HAND FRACTURE [None]
  - SYNCOPE [None]
